FAERS Safety Report 9517406 (Version 1)
Quarter: 2013Q3

REPORT INFORMATION
  Report Type: Spontaneous
  Country: DE (occurrence: DE)
  Receive Date: 20130911
  Receipt Date: 20130911
  Transmission Date: 20140515
  Serious: Yes (Death, Hospitalization)
  Sender: FDA-Public Use
  Company Number: DE-MYLANLABS-2013S1019558

PATIENT
  Age: 63 Year
  Sex: 0

DRUGS (2)
  1. VEMURAFENIB [Suspect]
     Indication: METASTATIC MALIGNANT MELANOMA
     Route: 065
  2. ALLOPURINOL [Suspect]
     Indication: METASTATIC MALIGNANT MELANOMA
     Route: 065

REACTIONS (2)
  - Leukopenia [Fatal]
  - Septic shock [Fatal]
